FAERS Safety Report 20581496 (Version 2)
Quarter: 2022Q1

REPORT INFORMATION
  Report Type: Spontaneous
  Country: PT (occurrence: PT)
  Receive Date: 20220311
  Receipt Date: 20220328
  Transmission Date: 20220424
  Serious: Yes (Other)
  Sender: FDA-Public Use
  Company Number: None

PATIENT
  Sex: Male

DRUGS (7)
  1. PREDNISOLONE [Suspect]
     Active Substance: PREDNISOLONE
     Indication: Chronic inflammatory demyelinating polyradiculoneuropathy
     Dosage: 60 MILLIGRAM,PER DAY
     Route: 065
     Dates: start: 1998
  2. METHOTREXATE [Suspect]
     Active Substance: METHOTREXATE
     Indication: Chronic inflammatory demyelinating polyradiculoneuropathy
     Dosage: UNK
     Route: 065
     Dates: start: 2003
  3. METHOTREXATE [Suspect]
     Active Substance: METHOTREXATE
     Indication: Rheumatoid arthritis
  4. DEFLAZACORT [Suspect]
     Active Substance: DEFLAZACORT
     Indication: Chronic inflammatory demyelinating polyradiculoneuropathy
     Dosage: UNK
     Route: 065
     Dates: start: 1998
  5. CYCLOPHOSPHAMIDE [Suspect]
     Active Substance: CYCLOPHOSPHAMIDE
     Indication: Chronic inflammatory demyelinating polyradiculoneuropathy
     Dosage: 4 G/M2
     Route: 065
     Dates: start: 2010
  6. METHYLPREDNISOLONE [Suspect]
     Active Substance: METHYLPREDNISOLONE
     Indication: Chronic inflammatory demyelinating polyradiculoneuropathy
     Dosage: HIGH DOSE
     Route: 065
     Dates: start: 2015
  7. RITUXIMAB [Suspect]
     Active Substance: RITUXIMAB
     Indication: Chronic inflammatory demyelinating polyradiculoneuropathy
     Dosage: UNK
     Route: 065
     Dates: start: 2015

REACTIONS (2)
  - Osteopenia [Unknown]
  - Latent tuberculosis [Unknown]
